FAERS Safety Report 17241774 (Version 3)
Quarter: 2020Q1

REPORT INFORMATION
  Report Type: Spontaneous
  Country: US (occurrence: US)
  Receive Date: 20200107
  Receipt Date: 20200220
  Transmission Date: 20200409
  Serious: Yes (Other)
  Sender: FDA-Public Use
  Company Number: US-PFIZER INC-2020002210

PATIENT
  Age: 34 Year
  Sex: Female
  Weight: 65.77 kg

DRUGS (2)
  1. BICILLIN L-A [Suspect]
     Active Substance: PENICILLIN G BENZATHINE
     Indication: INFECTION
     Dosage: 600,000 UNITS
  2. BICILLIN L-A [Suspect]
     Active Substance: PENICILLIN G BENZATHINE
     Dosage: UNK, WEEKLY(1.2 MILLION UNITS PER 2ML SYRINGE-DEEP MUSCULAR INJECTION-ONCE WEEKLY)
     Route: 030
     Dates: start: 2019

REACTIONS (1)
  - Therapeutic product effect incomplete [Unknown]
